FAERS Safety Report 20418398 (Version 1)
Quarter: 2022Q1

REPORT INFORMATION
  Report Type: Spontaneous
  Country: IL (occurrence: IL)
  Receive Date: 20220202
  Receipt Date: 20220202
  Transmission Date: 20220423
  Serious: Yes (Other)
  Sender: FDA-Public Use
  Company Number: IL-PFIZER INC-202200148470

PATIENT
  Age: 62 Year
  Sex: Male

DRUGS (1)
  1. PAXLOVID [Suspect]
     Active Substance: NIRMATRELVIR\RITONAVIR
     Indication: COVID-19
     Dosage: UNK
     Dates: start: 20220112, end: 20220114

REACTIONS (5)
  - Angina pectoris [Unknown]
  - Asthenia [Unknown]
  - Tremor [Unknown]
  - Dysgeusia [Unknown]
  - Decreased appetite [Unknown]
